FAERS Safety Report 17118572 (Version 2)
Quarter: 2019Q4

REPORT INFORMATION
  Report Type: Spontaneous
  Country: CH (occurrence: CH)
  Receive Date: 20191206
  Receipt Date: 20191206
  Transmission Date: 20200122
  Serious: Yes (Hospitalization, Other)
  Sender: FDA-Public Use
  Company Number: CH-ABBVIE-19K-151-2926942-00

PATIENT
  Sex: Male

DRUGS (1)
  1. HUMIRA [Suspect]
     Active Substance: ADALIMUMAB
     Indication: PSORIASIS
     Route: 058
     Dates: start: 2011

REACTIONS (3)
  - Alopecia areata [Unknown]
  - Granulomatous rosacea [Unknown]
  - Plasmacytosis [Unknown]

NARRATIVE: CASE EVENT DATE: 2019
